FAERS Safety Report 5329878-4 (Version None)
Quarter: 2007Q2

REPORT INFORMATION
  Report Type: 
  Country: None (occurrence: None)
  Receive Date: 20070521
  Receipt Date: 20070516
  Transmission Date: 20071010
  Serious: Yes (Other)
  Sender: FDA-Public Use
  Company Number: JP-AVENTIS-200711267JP

PATIENT

DRUGS (1)
  1. LASIX [Suspect]

REACTIONS (1)
  - HISTIOCYTOSIS HAEMATOPHAGIC [None]
